FAERS Safety Report 16655620 (Version 1)
Quarter: 2019Q3

REPORT INFORMATION
  Report Type: Spontaneous
  Country: US (occurrence: US)
  Receive Date: 20190801
  Receipt Date: 20190801
  Transmission Date: 20191004
  Serious: Yes (Other)
  Sender: FDA-Public Use
  Company Number: US-ROCHE-2364739

PATIENT
  Sex: Female

DRUGS (7)
  1. BUPROPION. [Concomitant]
     Active Substance: BUPROPION
  2. OMEPRAZOLE. [Concomitant]
     Active Substance: OMEPRAZOLE
  3. VALIUM [Suspect]
     Active Substance: DIAZEPAM
     Indication: ANXIETY
     Route: 065
  4. TECFIDERA [Suspect]
     Active Substance: DIMETHYL FUMARATE
     Indication: MULTIPLE SCLEROSIS
     Route: 048
     Dates: start: 20180216
  5. BISOPROLOL [Concomitant]
     Active Substance: BISOPROLOL
  6. FERROUS SULPHATE [FERROUS SULFATE] [Concomitant]
     Active Substance: FERROUS SULFATE
  7. AMPYRA [Suspect]
     Active Substance: DALFAMPRIDINE
     Indication: MULTIPLE SCLEROSIS
     Dosage: ONGOING: YES
     Route: 048
     Dates: start: 20180104

REACTIONS (11)
  - Muscle strain [Unknown]
  - Flushing [Recovered/Resolved]
  - Vertigo [Not Recovered/Not Resolved]
  - Multiple sclerosis [Not Recovered/Not Resolved]
  - Vomiting [Unknown]
  - Lactose intolerance [Unknown]
  - Balance disorder [Unknown]
  - Defaecation urgency [Unknown]
  - Dyspepsia [Recovered/Resolved]
  - Malaise [Unknown]
  - Tremor [Unknown]
